FAERS Safety Report 9955566 (Version 1)
Quarter: 2014Q1

REPORT INFORMATION
  Report Type: Report from Study
  Country: US (occurrence: US)
  Receive Date: 20140304
  Receipt Date: 20140304
  Transmission Date: 20141002
  Serious: No
  Sender: FDA-Public Use
  Company Number: US-ABBVIE-13P-163-1084011-00

PATIENT
  Age: 38 Year
  Sex: Male
  Weight: 97.16 kg

DRUGS (6)
  1. HUMIRA [Suspect]
     Indication: PSORIASIS
     Route: 058
     Dates: start: 20130115, end: 20130115
  2. HUMIRA [Suspect]
     Route: 058
     Dates: start: 20130122
  3. PRAVASTATIN [Concomitant]
     Indication: BLOOD CHOLESTEROL INCREASED
  4. ZYPREXA [Concomitant]
     Indication: SCHIZOAFFECTIVE DISORDER
  5. PROZAC [Concomitant]
     Indication: SCHIZOAFFECTIVE DISORDER
  6. KLONOPIN [Concomitant]
     Indication: SCHIZOAFFECTIVE DISORDER

REACTIONS (2)
  - Muscle strain [Recovering/Resolving]
  - Back pain [Recovering/Resolving]
